FAERS Safety Report 7546746-8 (Version None)
Quarter: 2011Q2

REPORT INFORMATION
  Report Type: 
  Country: None (occurrence: None)
  Receive Date: 20110614
  Receipt Date: 20110524
  Transmission Date: 20111010
  Serious: Yes (Other)
  Sender: FDA-Public Use
  Company Number: B0722331A

PATIENT
  Sex: Male

DRUGS (7)
  1. DOXAZOSIN MESYLATE [Suspect]
     Indication: HYPERTENSION
     Route: 048
  2. LYRICA [Suspect]
     Indication: ANALGESIC THERAPY
     Route: 048
  3. URIEF [Concomitant]
     Route: 048
  4. DUTASTERIDE [Suspect]
     Indication: BENIGN PROSTATIC HYPERPLASIA
     Dosage: .5MG PER DAY
     Route: 048
  5. NORVASC [Suspect]
     Indication: HYPERTENSION
     Route: 048
  6. CANDESARTAN CILEXETIL [Suspect]
     Indication: HYPERTENSION
     Route: 048
  7. MOBIC [Suspect]
     Indication: ANALGESIC THERAPY
     Route: 048

REACTIONS (3)
  - CARDIAC FAILURE [None]
  - BLOOD PRESSURE DECREASED [None]
  - RENAL FAILURE [None]
